FAERS Safety Report 8296112-5 (Version None)
Quarter: 2012Q2

REPORT INFORMATION
  Report Type: 
  Country: None (occurrence: None)
  Receive Date: 20120418
  Receipt Date: 20120412
  Transmission Date: 20120825
  Serious: Yes (Hospitalization)
  Sender: FDA-Public Use
  Company Number: US-GLAXOSMITHKLINE-A0973868A

PATIENT
  Age: 56 Year
  Sex: Male
  Weight: 104.5 kg

DRUGS (7)
  1. ZETIA [Concomitant]
  2. AVANDIA [Suspect]
     Indication: DIABETES MELLITUS
     Dosage: 8MG PER DAY
     Route: 048
     Dates: start: 20040308, end: 20071101
  3. PREVACID [Concomitant]
  4. TOPROL-XL [Concomitant]
  5. LIPITOR [Concomitant]
  6. TRICOR [Concomitant]
  7. GLYBURIDE [Concomitant]

REACTIONS (2)
  - CORONARY ARTERY DISEASE [None]
  - CAROTID ARTERY STENOSIS [None]
